FAERS Safety Report 21450996 (Version 2)
Quarter: 2023Q1

REPORT INFORMATION
  Report Type: Report from Study
  Country: US (occurrence: US)
  Receive Date: 20221013
  Receipt Date: 20230114
  Transmission Date: 20230418
  Serious: Yes (Other)
  Sender: FDA-Public Use
  Company Number: US-NOVARTISPH-NVSC2022US228707

PATIENT
  Sex: Male

DRUGS (2)
  1. ENTRESTO [Suspect]
     Active Substance: SACUBITRIL\VALSARTAN
     Indication: Product used for unknown indication
     Dosage: 50 MG, BID (24/26 MG)
     Route: 048
     Dates: start: 2022
  2. ENTRESTO [Suspect]
     Active Substance: SACUBITRIL\VALSARTAN
     Dosage: UNK, QD (49/51 MG)
     Route: 048
     Dates: start: 2022

REACTIONS (6)
  - Heart rate decreased [Unknown]
  - Decreased appetite [Unknown]
  - Blood potassium increased [Unknown]
  - Total lung capacity abnormal [Unknown]
  - Fatigue [Unknown]
  - Dyspnoea [Unknown]
